FAERS Safety Report 8366816-4 (Version None)
Quarter: 2012Q2

REPORT INFORMATION
  Report Type: 
  Country: None (occurrence: None)
  Receive Date: 20120517
  Receipt Date: 20120510
  Transmission Date: 20120825
  Serious: Yes (Other)
  Sender: FDA-Public Use
  Company Number: AU-PFIZER INC-2012115288

PATIENT
  Age: 49 Year
  Sex: Female

DRUGS (3)
  1. CARBOPLATIN [Suspect]
     Indication: BREAST CANCER
     Dosage: AREA UNDER THE CURVE 6
  2. DOCETAXEL [Concomitant]
     Dosage: 75 MG/M2, UNK
  3. TRASTUZUMAB [Concomitant]
     Dosage: 8 MG/KG, THEN 6 MG/KG ONCE EVERY 3 WEEKS

REACTIONS (1)
  - INAPPROPRIATE ANTIDIURETIC HORMONE SECRETION [None]
